FAERS Safety Report 17886948 (Version 2)
Quarter: 2022Q3

REPORT INFORMATION
  Report Type: Spontaneous
  Country: IN (occurrence: IN)
  Receive Date: 20200612
  Receipt Date: 20220810
  Transmission Date: 20221027
  Serious: Yes (Other)
  Sender: FDA-Public Use
  Company Number: IN-SUN PHARMACEUTICAL INDUSTRIES LTD-2020R1-249619

PATIENT
  Sex: Female

DRUGS (6)
  1. OCTREOTIDE [Suspect]
     Active Substance: OCTREOTIDE
     Indication: Hyperinsulinaemic hypoglycaemia
     Dosage: 5 MICROGRAM/KILOGRAM, DAILY
     Route: 058
  2. OCTREOTIDE [Suspect]
     Active Substance: OCTREOTIDE
     Dosage: 15 MICROGRAM/KILOGRAM, DAILY
     Route: 058
  3. DIAZOXIDE [Suspect]
     Active Substance: DIAZOXIDE
     Indication: Hyperinsulinaemic hypoglycaemia
     Dosage: 5 MILLIGRAM/KILOGRAM, DAILY
     Route: 048
  4. DIAZOXIDE [Suspect]
     Active Substance: DIAZOXIDE
     Dosage: 20 MILLIGRAM/KILOGRAM, DAILY
     Route: 048
  5. HYDROCHLOROTHIAZIDE [Concomitant]
     Active Substance: HYDROCHLOROTHIAZIDE
     Indication: Fluid retention
     Dosage: 1 MILLIGRAM/KILOGRAM, DAILY
     Route: 048
  6. HYDROCHLOROTHIAZIDE [Concomitant]
     Active Substance: HYDROCHLOROTHIAZIDE
     Dosage: 2 MILLIGRAM/KILOGRAM, DAILY
     Route: 048

REACTIONS (3)
  - Congenital megacolon [Recovering/Resolving]
  - Drug ineffective [Unknown]
  - Gastrooesophageal reflux disease [Recovering/Resolving]
